FAERS Safety Report 9080055 (Version 1)
Quarter: 2013Q1

REPORT INFORMATION
  Report Type: Spontaneous
  Country: US (occurrence: US)
  Receive Date: 20130130
  Receipt Date: 20130130
  Transmission Date: 20140127
  Serious: No
  Sender: FDA-Public Use
  Company Number: US-VERTEX PHARMACEUTICALS INC.-2013-001311

PATIENT
  Age: 56 Year
  Sex: Male
  Weight: 91 kg

DRUGS (6)
  1. INCIVEK [Suspect]
     Indication: HEPATITIS C
     Dosage: 750 MG, TID
     Route: 048
     Dates: start: 20130118
  2. RIBASPHERE [Suspect]
     Indication: HEPATITIS C
     Dosage: 600 MG AM, 400 MG PM
     Dates: start: 20130118
  3. PEGASYS [Suspect]
     Indication: HEPATITIS C
     Dosage: 180 ?G, WEEKLY
     Dates: start: 20130117
  4. RESTORIL [Concomitant]
     Dosage: 30 MG, QD
  5. CLARITIN [Concomitant]
     Dosage: UNK, QD
  6. BUT/APAP/CAF/50/325/40 [Concomitant]

REACTIONS (8)
  - Sinus disorder [Recovered/Resolved]
  - Headache [Recovered/Resolved]
  - Neck pain [Recovered/Resolved]
  - Insomnia [Recovered/Resolved]
  - Injection site rash [Recovered/Resolved]
  - Fatigue [Recovered/Resolved]
  - Anorectal discomfort [Recovered/Resolved]
  - Diarrhoea [Recovered/Resolved]
